FAERS Safety Report 14423501 (Version 1)
Quarter: 2018Q1

REPORT INFORMATION
  Report Type: Spontaneous
  Country: US (occurrence: US)
  Receive Date: 20180123
  Receipt Date: 20180123
  Transmission Date: 20180509
  Serious: No
  Sender: FDA-Public Use
  Company Number: US-TEVA-816963USA

PATIENT
  Age: 9 Year
  Sex: Female

DRUGS (1)
  1. DEXMETHYLPHENIDATE [Suspect]
     Active Substance: DEXMETHYLPHENIDATE HYDROCHLORIDE
     Indication: ATTENTION DEFICIT/HYPERACTIVITY DISORDER
     Dates: start: 2012, end: 2012

REACTIONS (5)
  - Decreased appetite [Unknown]
  - Vomiting [Unknown]
  - Drug effect increased [Unknown]
  - Insomnia [Unknown]
  - Tooth extraction [Unknown]

NARRATIVE: CASE EVENT DATE: 20171006
